FAERS Safety Report 16915628 (Version 1)
Quarter: 2019Q4

REPORT INFORMATION
  Report Type: Spontaneous
  Country: CA (occurrence: CA)
  Receive Date: 20191014
  Receipt Date: 20191014
  Transmission Date: 20200122
  Serious: Yes (Hospitalization, Other)
  Sender: FDA-Public Use
  Company Number: CA-TEVA-2019-CA-1121136

PATIENT
  Age: 13 Year
  Sex: Male
  Weight: 58 kg

DRUGS (6)
  1. CARBOPLATIN. [Suspect]
     Active Substance: CARBOPLATIN
     Indication: CNS GERMINOMA
     Route: 042
  2. ONDANSETRON [Concomitant]
     Active Substance: ONDANSETRON
     Indication: NAUSEA
     Dosage: 24 MILLIGRAM DAILY;
     Route: 048
  3. LEVOTHYROXINE. [Concomitant]
     Active Substance: LEVOTHYROXINE
     Dosage: .075 MILLIGRAM DAILY;
     Route: 048
  4. ETOPOSIDE. [Suspect]
     Active Substance: ETOPOSIDE
     Indication: CNS GERMINOMA
     Route: 042
  5. HYDROCORTISONE. [Concomitant]
     Active Substance: HYDROCORTISONE
     Dosage: 10 MILLIGRAM DAILY;
     Route: 048
  6. DESMOPRESSIN [Concomitant]
     Active Substance: DESMOPRESSIN
     Indication: FLUID IMBALANCE
     Route: 048

REACTIONS (4)
  - Anaphylactic reaction [Not Recovered/Not Resolved]
  - Flushing [Not Recovered/Not Resolved]
  - Oropharyngeal pain [Not Recovered/Not Resolved]
  - Rash [Not Recovered/Not Resolved]
